FAERS Safety Report 13791487 (Version 1)
Quarter: 2017Q3

REPORT INFORMATION
  Report Type: Spontaneous
  Country: IT (occurrence: IT)
  Receive Date: 20170725
  Receipt Date: 20170725
  Transmission Date: 20171127
  Serious: Yes (Other)
  Sender: FDA-Public Use
  Company Number: PHHY2017IT107453

PATIENT
  Age: 30 Year
  Sex: Female

DRUGS (2)
  1. IBIFEN [Suspect]
     Active Substance: KETOPROFEN
     Indication: NECK PAIN
     Dosage: 1 DF, TOTAL
     Route: 041
     Dates: start: 20170603, end: 20170603
  2. PANTOPRAZOLE [Suspect]
     Active Substance: PANTOPRAZOLE
     Indication: NECK PAIN
     Dosage: 1 DF, TOTAL
     Route: 041
     Dates: start: 20170603, end: 20170603

REACTIONS (2)
  - Hyperhidrosis [Recovered/Resolved]
  - Syncope [Recovered/Resolved]

NARRATIVE: CASE EVENT DATE: 20170603
